FAERS Safety Report 7490115-6 (Version None)
Quarter: 2011Q2

REPORT INFORMATION
  Report Type: 
  Country: None (occurrence: None)
  Receive Date: 20110519
  Receipt Date: 20110516
  Transmission Date: 20111010
  Serious: Yes (Hospitalization)
  Sender: FDA-Public Use
  Company Number: US-PFIZER INC-2011104904

PATIENT
  Sex: Female
  Weight: 52.608 kg

DRUGS (3)
  1. NEURONTIN [Suspect]
     Indication: NEURALGIA
     Dosage: 300 MG, 3X/DAY
     Route: 048
     Dates: start: 20100801, end: 20101101
  2. FLEXERIL [Concomitant]
     Dosage: UNK
  3. NAPROXEN [Concomitant]
     Dosage: UNK

REACTIONS (2)
  - DEPRESSION [None]
  - SUICIDAL IDEATION [None]
